FAERS Safety Report 24025114 (Version 2)
Quarter: 2024Q3

REPORT INFORMATION
  Report Type: Report from Study
  Country: CN (occurrence: CN)
  Receive Date: 20240628
  Receipt Date: 20240710
  Transmission Date: 20241016
  Serious: No
  Sender: ROCHE
  Company Number: CN-ROCHE-3335700

PATIENT
  Age: 48 Year
  Sex: Female

DRUGS (1)
  1. ALECTINIB [Suspect]
     Active Substance: ALECTINIB
     Indication: Non-small cell lung cancer metastatic
     Route: 048
     Dates: start: 20220414

REACTIONS (2)
  - Hyperuricaemia [Not Recovered/Not Resolved]
  - Malaise [Not Recovered/Not Resolved]

NARRATIVE: CASE EVENT DATE: 20230105
